FAERS Safety Report 21347482 (Version 1)
Quarter: 2022Q3

REPORT INFORMATION
  Report Type: Spontaneous
  Country: US (occurrence: None)
  Receive Date: 20220919
  Receipt Date: 20220919
  Transmission Date: 20221027
  Serious: No
  Sender: FDA-Public Use
  Company Number: 2022A312997

PATIENT
  Age: 71 Year
  Sex: Male
  Weight: 108.9 kg

DRUGS (1)
  1. BUDESONIDE\FORMOTEROL\GLYCOPYRRONIUM [Suspect]
     Active Substance: BUDESONIDE\FORMOTEROL\GLYCOPYRRONIUM
     Dosage: 160MCG/9MCG/4.8MCG, 2 PUFFS TWICE DAILY
     Route: 055
     Dates: start: 2021

REACTIONS (6)
  - Visual impairment [Unknown]
  - Dyspnoea [Not Recovered/Not Resolved]
  - Wrong technique in device usage process [Unknown]
  - Product dose omission issue [Not Recovered/Not Resolved]
  - Device malfunction [Unknown]
  - Intentional device use issue [Unknown]

NARRATIVE: CASE EVENT DATE: 20220907
